FAERS Safety Report 9788041 (Version 1)
Quarter: 2013Q4

REPORT INFORMATION
  Report Type: Spontaneous
  Country: US (occurrence: None)
  Receive Date: 20131227
  Receipt Date: 20131227
  Transmission Date: 20140711
  Serious: Yes (Hospitalization)
  Sender: FDA-Public Use
  Company Number: None

PATIENT
  Age: 63 Year
  Sex: Female
  Weight: 98.7 kg

DRUGS (17)
  1. BACTRIM [Suspect]
     Route: 048
  2. ALDACTONE [Suspect]
     Indication: CARDIAC FAILURE CONGESTIVE
     Dosage: 1/2 TABLET?CHRONIC
     Route: 048
  3. ALDACTONE [Suspect]
     Indication: DIURETIC THERAPY
     Dosage: 1/2 TABLET?CHRONIC
     Route: 048
  4. KLOR-CON 20MG PO DAILY [Suspect]
     Indication: MINERAL SUPPLEMENTATION
     Dosage: CHRONIC
  5. ASA 81MG PO DAILY [Suspect]
     Dosage: CHRONIC
  6. SIMVASTATIN [Concomitant]
  7. LANTUS [Concomitant]
  8. HUMALOG [Concomitant]
  9. NTG [Concomitant]
  10. KLOR-CON [Concomitant]
  11. METFORMIN [Concomitant]
  12. IRON [Concomitant]
  13. GABAPENTIN [Concomitant]
  14. LISINOPRIL [Concomitant]
  15. MAGNESIUM [Concomitant]
  16. CARVEDILOL [Concomitant]
  17. TRAMADOL [Concomitant]

REACTIONS (4)
  - Renal failure acute [None]
  - Hyperkalaemia [None]
  - Impaired healing [None]
  - Nephropathy toxic [None]
